FAERS Safety Report 6619619-2 (Version None)
Quarter: 2010Q1

REPORT INFORMATION
  Report Type: 
  Country: None (occurrence: None)
  Receive Date: 20100309
  Receipt Date: 20100303
  Transmission Date: 20100710
  Serious: Yes (Other)
  Sender: FDA-Public Use
  Company Number: US-SANOFI-AVENTIS-2009SA003176

PATIENT
  Age: 78 Year
  Sex: Male
  Weight: 113.3 kg

DRUGS (18)
  1. PLAVIX [Suspect]
     Route: 048
     Dates: start: 20040101
  2. PLAVIX [Suspect]
     Indication: STENT PLACEMENT
     Route: 048
     Dates: start: 20040101
  3. PLAVIX [Suspect]
     Route: 048
     Dates: start: 20040101
  4. PLAVIX [Suspect]
     Indication: HYPERTENSION
     Route: 048
     Dates: start: 20040101
  5. PLAVIX [Suspect]
     Indication: CHRONIC OBSTRUCTIVE PULMONARY DISEASE
     Route: 048
     Dates: start: 20040101
  6. ASPIRIN [Suspect]
     Route: 065
  7. MINOCYCLINE HCL [Concomitant]
     Dosage: TAKEN FOR YEARS
     Route: 048
  8. METFORMIN HYDROCHLORIDE [Concomitant]
     Dosage: TAKEN FOR YEARS
     Route: 048
  9. AMLODIPINE BESYLATE [Concomitant]
     Route: 048
  10. HYDROCHLOROTHIAZIDE [Concomitant]
  11. SIMVASTATIN [Concomitant]
     Route: 048
  12. FOLIC ACID [Concomitant]
     Route: 048
  13. ALBUTEROL SULFATE AUTOHALER [Concomitant]
     Route: 048
  14. ADVAIR DISKUS 100/50 [Concomitant]
     Dosage: 250-50 MCG AS DIRECTED
  15. MULTI-VITAMINS [Concomitant]
     Route: 048
  16. FLOMAX [Concomitant]
     Route: 048
  17. GLIPIZIDE [Concomitant]
     Route: 048
  18. DOXAZOSIN MESILATE [Concomitant]
     Route: 048

REACTIONS (3)
  - CAROTID ARTERY STENOSIS [None]
  - CONTUSION [None]
  - PERIPHERAL ARTERIAL OCCLUSIVE DISEASE [None]
